FAERS Safety Report 4283159-9 (Version None)
Quarter: 2004Q1

REPORT INFORMATION
  Report Type: 
  Country: None (occurrence: None)
  Receive Date: 20040121
  Receipt Date: 20040105
  Transmission Date: 20041129
  Serious: Yes (Disabling, Other)
  Sender: FDA-Public Use
  Company Number: 601052

PATIENT
  Age: 66 Year
  Sex: Female

DRUGS (2)
  1. HEMASEEL APR KIT [Suspect]
     Indication: SPINAL LAMINECTOMY
     Dosage: ONCE
     Dates: start: 20030224, end: 20030224
  2. FLOSEAL MATRIX HEMOSTATIC SEALANT [Suspect]
     Indication: SPINAL LAMINECTOMY
     Dosage: ONCE
     Dates: start: 20030224, end: 20030224

REACTIONS (3)
  - BEDRIDDEN [None]
  - DIPLEGIA [None]
  - POST PROCEDURAL COMPLICATION [None]
